FAERS Safety Report 8499115-0 (Version None)
Quarter: 2012Q2

REPORT INFORMATION
  Report Type: 
  Country: None (occurrence: None)
  Receive Date: 20120405
  Receipt Date: 20100301
  Transmission Date: 20120825
  Serious: Yes (Disabling, Other)
  Sender: FDA-Public Use
  Company Number: PHHY2010US09891

PATIENT
  Age: 66 Year
  Sex: Female

DRUGS (6)
  1. RECLAST [Suspect]
     Indication: OSTEOPOROSIS
     Dosage: IV INFUSION
     Route: 042
     Dates: start: 20090821, end: 20090821
  2. ESTRADERM [Concomitant]
  3. NEXIUM (ESOMERAZOLE MAGNESIUM) [Concomitant]
  4. PROZAC [Concomitant]
  5. DIOVAN [Concomitant]
  6. HYDROCHLOROTHIAZIDE [Concomitant]

REACTIONS (6)
  - BODY TEMPERATURE INCREASED [None]
  - MYALGIA [None]
  - HEADACHE [None]
  - FATIGUE [None]
  - FEELING ABNORMAL [None]
  - OEDEMA PERIPHERAL [None]
